FAERS Safety Report 4683009-2 (Version None)
Quarter: 2005Q2

REPORT INFORMATION
  Report Type: 
  Country: None (occurrence: None)
  Receive Date: 20050602
  Receipt Date: 20050210
  Transmission Date: 20051028
  Serious: No
  Sender: FDA-Public Use
  Company Number: USA050290509

PATIENT
  Age: 54 Year
  Sex: Male

DRUGS (4)
  1. CYMBALTA [Suspect]
     Indication: FIBROMYALGIA
     Dosage: 120 MG DAY
     Dates: start: 20050106
  2. HYDROCODONE [Concomitant]
  3. AMBIEN [Concomitant]
  4. PAXIL [Concomitant]

REACTIONS (4)
  - DRY MOUTH [None]
  - FEELING ABNORMAL [None]
  - PARAESTHESIA ORAL [None]
  - PRESCRIBED OVERDOSE [None]
